FAERS Safety Report 15574679 (Version 1)
Quarter: 2018Q4

REPORT INFORMATION
  Report Type: Spontaneous
  Country: PT (occurrence: PT)
  Receive Date: 20181101
  Receipt Date: 20181101
  Transmission Date: 20190205
  Serious: Yes (Other)
  Sender: FDA-Public Use
  Company Number: PT-TEVA-2018-PT-969976

PATIENT
  Age: 17 Year
  Sex: Male

DRUGS (1)
  1. IBUPROFENO RATIOPHARM 600MG [Suspect]
     Active Substance: IBUPROFEN
     Indication: LIMB INJURY
     Dosage: PATIENT ONLY TOOK ONE TABLET
     Route: 048

REACTIONS (2)
  - Erythema [Not Recovered/Not Resolved]
  - Dyspnoea [Recovered/Resolved]
